FAERS Safety Report 9409469 (Version 2)
Quarter: 2013Q3

REPORT INFORMATION
  Report Type: Report from Study
  Country: GB (occurrence: GB)
  Receive Date: 20130719
  Receipt Date: 20130723
  Transmission Date: 20140515
  Serious: Yes (Hospitalization, Other)
  Sender: FDA-Public Use
  Company Number: GB-ROCHE-1249205

PATIENT
  Age: 89 Year
  Sex: Female
  Weight: 56.07 kg

DRUGS (4)
  1. RANIBIZUMAB [Suspect]
     Indication: AGE-RELATED MACULAR DEGENERATION
     Route: 050
     Dates: start: 20130209
  2. RANIBIZUMAB [Suspect]
     Route: 050
     Dates: start: 20130408
  3. LEVOTHYROXINE [Concomitant]
     Route: 065
     Dates: start: 20030207
  4. CALCICHEW D3 FORTE [Concomitant]
     Route: 065
     Dates: start: 20070822

REACTIONS (7)
  - Femur fracture [Recovered/Resolved]
  - Fall [Unknown]
  - Weight bearing difficulty [Unknown]
  - VIIth nerve paralysis [Unknown]
  - Dysarthria [Unknown]
  - Cardiovascular disorder [Unknown]
  - Visual acuity reduced [Unknown]
